FAERS Safety Report 21754933 (Version 1)
Quarter: 2022Q4

REPORT INFORMATION
  Report Type: Report from Study
  Country: US (occurrence: US)
  Receive Date: 20221220
  Receipt Date: 20221220
  Transmission Date: 20230113
  Serious: Yes (Hospitalization, Other)
  Sender: FDA-Public Use
  Company Number: US-AGIOS-2212US03214

PATIENT
  Sex: Male

DRUGS (1)
  1. MITAPIVAT [Suspect]
     Active Substance: MITAPIVAT
     Indication: Pyruvate kinase deficiency anaemia
     Dosage: 10 MILLIGRAM, QD
     Route: 048
     Dates: start: 20221130

REACTIONS (3)
  - Intestinal obstruction [Unknown]
  - Abdominal pain [Unknown]
  - Product dose omission issue [Unknown]
